FAERS Safety Report 23118319 (Version 1)
Quarter: 2023Q4

REPORT INFORMATION
  Report Type: Spontaneous
  Country: US (occurrence: US)
  Receive Date: 20231028
  Receipt Date: 20231028
  Transmission Date: 20240110
  Serious: No
  Sender: FDA-Public Use
  Company Number: US-ABBVIE-5461667

PATIENT
  Age: 21 Year
  Sex: Female

DRUGS (1)
  1. BOTOX [Suspect]
     Active Substance: ONABOTULINUMTOXINA
     Indication: Migraine
     Dosage: TIME INTERVAL: AS NECESSARY
     Route: 065
     Dates: start: 2022

REACTIONS (3)
  - Head injury [Unknown]
  - Ophthalmoplegia [Unknown]
  - Post concussion syndrome [Unknown]

NARRATIVE: CASE EVENT DATE: 20231016
